FAERS Safety Report 21283974 (Version 1)
Quarter: 2022Q3

REPORT INFORMATION
  Report Type: Report from Study
  Country: DE (occurrence: DE)
  Receive Date: 20220901
  Receipt Date: 20220901
  Transmission Date: 20221027
  Serious: Yes (Life-Threatening, Other)
  Sender: FDA-Public Use
  Company Number: DE-BRISTOL-MYERS SQUIBB COMPANY-2022-094733

PATIENT
  Age: 57 Year
  Sex: Male
  Weight: 99 kg

DRUGS (40)
  1. LENALIDOMIDE [Suspect]
     Active Substance: LENALIDOMIDE
     Indication: Plasma cell myeloma
     Dosage: 25 MILLIGRAMS / DAY (25 MILLIGRAMS, CYCLICAL) (BEFORE STEM CELL MOBILIZATION);
     Route: 048
     Dates: start: 20200218, end: 20200505
  2. LENALIDOMIDE [Suspect]
     Active Substance: LENALIDOMIDE
     Dosage: 25 MILLIGRAMS / DAY (25 MILLIGRAMS, CYCLICAL
     Route: 048
     Dates: start: 20200603, end: 20200818
  3. LENALIDOMIDE [Suspect]
     Active Substance: LENALIDOMIDE
     Dosage: 15 MILLIGRAMS / DAY (15 MILLIGRAMS, CYCLICAL)
     Route: 048
     Dates: start: 20210112, end: 20210201
  4. LENALIDOMIDE [Suspect]
     Active Substance: LENALIDOMIDE
     Dosage: 25 MILLIGRAMS / DAY (25 MILLIGRAMS, CYCLICAL)
     Route: 048
     Dates: start: 20210209, end: 20210427
  5. LENALIDOMIDE [Suspect]
     Active Substance: LENALIDOMIDE
     Dosage: (10 MILLIGRAMS, D1-D28 OF CYCLE 1-3)
     Route: 048
     Dates: start: 20210621, end: 20210912
  6. LENALIDOMIDE [Suspect]
     Active Substance: LENALIDOMIDE
     Dosage: (15 MILLIGRAMS, D1-D28 OF CYCLE 4 AND 5)
     Route: 048
     Dates: start: 20210913, end: 20210919
  7. LENALIDOMIDE [Suspect]
     Active Substance: LENALIDOMIDE
     Dosage: (10 MILLIGRAMS, D1-D28 OF CYCLE 6-14)
     Route: 048
     Dates: start: 20210930, end: 20220731
  8. LENALIDOMIDE [Suspect]
     Active Substance: LENALIDOMIDE
     Route: 065
     Dates: end: 20220815
  9. DEXAMETHASONE [Suspect]
     Active Substance: DEXAMETHASONE
     Indication: Plasma cell myeloma
     Dosage: 28 MILLIGRAMS / DAY (28 MILLIGRAMS, CYCLICAL)
     Route: 048
     Dates: start: 20200218, end: 20200429
  10. DEXAMETHASONE [Suspect]
     Active Substance: DEXAMETHASONE
     Dosage: 8 MILLIGRAMS /DAY (8 MILLIGRAMS, CYCLICAL)
     Route: 042
     Dates: start: 20200218, end: 20200429
  11. DEXAMETHASONE [Suspect]
     Active Substance: DEXAMETHASONE
     Dosage: 40 MILLIGRAMS / DAY (40 MILLIGRAMS, D8+D22)  (BEFORE STEM CELL MOBILIZATION);
     Route: 048
     Dates: start: 20200506, end: 20200506
  12. DEXAMETHASONE [Suspect]
     Active Substance: DEXAMETHASONE
     Dosage: TABLET, ORAL, 28 MILLIGRAMS / DAY (28 MILLIGRAMS, D1+D15)
     Route: 048
     Dates: start: 20200603, end: 20200617
  13. DEXAMETHASONE [Suspect]
     Active Substance: DEXAMETHASONE
     Dosage: TABLET, ORAL, 12 MILLIGRAMS / DAY (12 MILLIGRAMS, D1+D15)
     Route: 048
     Dates: start: 20200701, end: 20200812
  14. DEXAMETHASONE [Suspect]
     Active Substance: DEXAMETHASONE
     Dosage: 8 MILLIGRAMS /DAY (8 MILLIGRAMS, D1+D15)
     Route: 042
     Dates: start: 20200603, end: 20200812
  15. DEXAMETHASONE [Suspect]
     Active Substance: DEXAMETHASONE
     Dosage: 40 MILLIGRAMS / DAY (40 MILLIGRAMS, D8+D22)
     Route: 048
     Dates: start: 20200610, end: 20200624
  16. DEXAMETHASONE [Suspect]
     Active Substance: DEXAMETHASONE
     Dosage: 20 MILLIGRAMS / DAY (20 MILLIGRAMS, D8+D22)
     Route: 048
     Dates: start: 20200708, end: 20200819
  17. DEXAMETHASONE [Suspect]
     Active Substance: DEXAMETHASONE
     Dosage: 20 MILLIGRAMS / DAY (20 MILLIGRAMS, D8+D22)
     Route: 048
     Dates: start: 20210119, end: 20210428
  18. DEXAMETHASONE [Suspect]
     Active Substance: DEXAMETHASONE
     Dosage: 12 MILLIGRAMS / DAY (12 MILLIGRAMS, D1+D15)
     Route: 048
     Dates: start: 20210112, end: 20210421
  19. DEXAMETHASONE [Suspect]
     Active Substance: DEXAMETHASONE
     Dosage: 8 MILLIGRAMS /DAY (8 MILLIGRAMS, D1+D15)
     Route: 042
     Dates: start: 20210209, end: 20210421
  20. DEXAMETHASONE [Suspect]
     Active Substance: DEXAMETHASONE
     Dosage: 12 MILLIGRAMS / DAY (12 MILLIGRAMS, D1 OF EACH CYCLE)
     Route: 048
     Dates: start: 20210621, end: 20210621
  21. DEXAMETHASONE [Suspect]
     Active Substance: DEXAMETHASONE
     Dosage: 8 MILLIGRAMS /DAY (8 MILLIGRAMS, D1 OF EACH CYCLE)
     Route: 042
     Dates: start: 20210621, end: 20211011
  22. DEXAMETHASONE [Suspect]
     Active Substance: DEXAMETHASONE
     Dosage: 28 MILLIGRAMS / DAY (28 MILLIGRAMS, D1 OF EACH CYCLE)
     Route: 048
     Dates: start: 20210719
  23. DEXAMETHASONE [Suspect]
     Active Substance: DEXAMETHASONE
     Dosage: 12 MILLIGRAMS / DAY (12 MILLIGRAMS, D1 OF EACH CYCLE)
     Route: 048
     Dates: start: 20210816, end: 20210816
  24. DEXAMETHASONE [Suspect]
     Active Substance: DEXAMETHASONE
     Dosage: 28 MILLIGRAMS / DAY (28 MILLIGRAMS, D1 OF EACH CYCLE)
     Route: 048
     Dates: start: 20210913, end: 20210913
  25. DEXAMETHASONE [Suspect]
     Active Substance: DEXAMETHASONE
     Dosage: 28 MILLIGRAMS / DAY (28 MILLIGRAMS, D1 OF EACH CYCLE)
     Route: 048
     Dates: start: 20211011, end: 20211011
  26. DEXAMETHASONE [Suspect]
     Active Substance: DEXAMETHASONE
     Dosage: 12 MILLIGRAMS / DAY (12 MILLIGRAMS, D1 OF EACH CYCLE
     Route: 048
     Dates: start: 20211206, end: 20211206
  27. DEXAMETHASONE [Suspect]
     Active Substance: DEXAMETHASONE
     Dosage: 8 MILLIGRAMS /DAY (8 MILLIGRAMS, D1 OF EACH CYCLE)
     Route: 042
     Dates: start: 20211206, end: 20211206
  28. DEXAMETHASONE [Suspect]
     Active Substance: DEXAMETHASONE
     Dosage: 12 MILLIGRAMS / DAY (12 MILLIGRAMS, D1 OF EACH CYCLE)
     Route: 048
     Dates: start: 20220228, end: 20220704
  29. DEXAMETHASONE [Suspect]
     Active Substance: DEXAMETHASONE
     Dosage: 8 MILLIGRAMS /DAY (8 MILLIGRAMS, D1 OF EACH CYCLE)
     Route: 042
     Dates: start: 20210621
  30. DEXAMETHASONE [Suspect]
     Active Substance: DEXAMETHASONE
     Route: 065
     Dates: end: 20220815
  31. ELOTUZUMAB [Suspect]
     Active Substance: ELOTUZUMAB
     Indication: Plasma cell myeloma
     Dosage: 950 MILLIGRAMS / DAY (10 MG/KG BW, CYCLICAL) (BEFORE THE STEM CELL MOBILIZATION);
     Route: 041
     Dates: start: 20200218, end: 20200429
  32. ELOTUZUMAB [Suspect]
     Active Substance: ELOTUZUMAB
     Dosage: 970 MILLIGRAMS / DAY (10 MG/KG BW, CYCLICAL)
     Route: 041
     Dates: start: 20200606, end: 20200812
  33. ELOTUZUMAB [Suspect]
     Active Substance: ELOTUZUMAB
     Dosage: 990 MILLIGRAMS / DAY (10 MG/KG BW, CYCLICAL)
     Route: 041
     Dates: start: 20200112, end: 20210421
  34. ELOTUZUMAB [Suspect]
     Active Substance: ELOTUZUMAB
     Dosage: 1980 MILLIGRAMS / DAY (20 MG/KG BW, D1 OF EACH 28-DAY CYCLE)
     Route: 041
     Dates: start: 20210621, end: 20220704
  35. ELOTUZUMAB [Suspect]
     Active Substance: ELOTUZUMAB
     Route: 065
     Dates: end: 20220815
  36. CARFILZOMIB [Suspect]
     Active Substance: CARFILZOMIB
     Indication: Plasma cell myeloma
     Dosage: 43.0 MILLIGRAMS / DAY (20 MG/M2 BSA, CYCLICAL)
     Route: 041
     Dates: start: 20200218, end: 20200219
  37. CARFILZOMIB [Suspect]
     Active Substance: CARFILZOMIB
     Dosage: 77.4 MILLIGRAMS / DAY (36 MG/M2 BSA, CYCLICAL)
     Route: 041
     Dates: start: 20200225, end: 20200430
  38. CARFILZOMIB [Suspect]
     Active Substance: CARFILZOMIB
     Dosage: DAY (36 MG/M2 BSA, CYCLICAL)
     Route: 041
     Dates: start: 20200603, end: 20200813
  39. CARFILZOMIB [Suspect]
     Active Substance: CARFILZOMIB
     Dosage: 78.8 MILLIGRAMS / DAY (36 MG/M2 BSA, CYCLICAL)
     Route: 041
     Dates: start: 20210101, end: 20210422
  40. CARFILZOMIB [Suspect]
     Active Substance: CARFILZOMIB
     Route: 065
     Dates: end: 20220815

REACTIONS (1)
  - Acute myeloid leukaemia [Not Recovered/Not Resolved]

NARRATIVE: CASE EVENT DATE: 20220802
